FAERS Safety Report 13611448 (Version 1)
Quarter: 2017Q2

REPORT INFORMATION
  Report Type: Spontaneous
  Country: US (occurrence: US)
  Receive Date: 20170605
  Receipt Date: 20170605
  Transmission Date: 20170830
  Serious: No
  Sender: FDA-Public Use
  Company Number: US-PFIZER INC-2017241569

PATIENT
  Sex: Female

DRUGS (1)
  1. XELJANZ XR [Suspect]
     Active Substance: TOFACITINIB CITRATE
     Dosage: 11 MG, DAILY

REACTIONS (5)
  - Restlessness [Unknown]
  - Dyspnoea exertional [Unknown]
  - Asthenia [Unknown]
  - Alopecia [Recovering/Resolving]
  - Gastrooesophageal reflux disease [Unknown]
